FAERS Safety Report 6688242-6 (Version None)
Quarter: 2010Q2

REPORT INFORMATION
  Report Type: 
  Country: None (occurrence: None)
  Receive Date: 20100420
  Receipt Date: 20100318
  Transmission Date: 20101027
  Serious: Yes (Other)
  Sender: FDA-Public Use
  Company Number: JP-SANOFI-AVENTIS-2010SA017202

PATIENT
  Age: 81 Year
  Sex: Male
  Weight: 48.5 kg

DRUGS (7)
  1. MYSLEE [Suspect]
     Indication: INSOMNIA
     Route: 048
     Dates: start: 20100227, end: 20100228
  2. FOIPAN [Concomitant]
     Indication: GASTRIC CANCER
     Route: 048
  3. URSO 250 [Concomitant]
     Route: 048
  4. RHYTHMY [Concomitant]
     Indication: INSOMNIA
     Route: 048
  5. OMEPRAL [Concomitant]
     Indication: DRUG USE FOR UNKNOWN INDICATION
     Route: 048
  6. DETRUSITOL [Concomitant]
     Route: 048
     Dates: start: 20091013
  7. STRONG NEO-MINOPHAGEN C [Concomitant]
     Route: 065
     Dates: start: 19950101

REACTIONS (3)
  - MYOCLONUS [None]
  - SPEECH DISORDER [None]
  - TREMOR [None]
